FAERS Safety Report 7815201-X (Version None)
Quarter: 2011Q4

REPORT INFORMATION
  Report Type: 
  Country: None (occurrence: None)
  Receive Date: 20111014
  Receipt Date: 20111006
  Transmission Date: 20120403
  Serious: Yes (Other)
  Sender: FDA-Public Use
  Company Number: IT-CEPHALON-2011005320

PATIENT
  Sex: Male

DRUGS (4)
  1. OXYCONTIN [Concomitant]
     Dates: start: 20110616, end: 20110713
  2. FENTANYL CITRATE [Suspect]
     Route: 002
     Dates: start: 20110624, end: 20110713
  3. TACHIDOL [Concomitant]
     Dates: start: 20110401, end: 20110713
  4. ARTROSILENE [Concomitant]
     Dates: start: 20110310, end: 20110713

REACTIONS (4)
  - DYSPNOEA [None]
  - BLOOD PRESSURE INCREASED [None]
  - HEART RATE INCREASED [None]
  - COLD SWEAT [None]
